FAERS Safety Report 6431820-X (Version None)
Quarter: 2009Q4

REPORT INFORMATION
  Report Type: 
  Country: None (occurrence: None)
  Receive Date: 20091104
  Receipt Date: 20091023
  Transmission Date: 20100525
  Serious: Yes (Hospitalization)
  Sender: FDA-Public Use
  Company Number: SPV1-2009-01986

PATIENT
  Age: 47 Year
  Sex: Male

DRUGS (5)
  1. FOSRENOL [Suspect]
     Indication: HYPERPHOSPHATAEMIA
     Dosage: 1500 MG, UNK, ORAL, 3000 MG, UNK, UNK, 1500 MG, UNK, UNK
     Route: 048
     Dates: start: 20090828, end: 20090906
  2. FOSRENOL [Suspect]
     Indication: HYPERPHOSPHATAEMIA
     Dosage: 1500 MG, UNK, ORAL, 3000 MG, UNK, UNK, 1500 MG, UNK, UNK
     Route: 048
     Dates: start: 20090907, end: 20090914
  3. FOSRENOL [Suspect]
     Indication: HYPERPHOSPHATAEMIA
     Dosage: 1500 MG, UNK, ORAL, 3000 MG, UNK, UNK, 1500 MG, UNK, UNK
     Route: 048
     Dates: start: 20090807, end: 20090927
  4. CINACALCET HYDROCHLORIDE (CINACALCET HYDROCHLORIDE) [Concomitant]
  5. PRAVASTATIN [Concomitant]

REACTIONS (4)
  - DUODENAL ULCER HAEMORRHAGE [None]
  - HAEMATEMESIS [None]
  - HAEMOGLOBIN DECREASED [None]
  - SHOCK [None]
